FAERS Safety Report 12612908 (Version 2)
Quarter: 2016Q3

REPORT INFORMATION
  Report Type: Spontaneous
  Country: TW (occurrence: TW)
  Receive Date: 20160802
  Receipt Date: 20160902
  Transmission Date: 20161109
  Serious: Yes (Hospitalization)
  Sender: FDA-Public Use
  Company Number: TW-ABBVIE-16K-153-1687534-00

PATIENT
  Age: 61 Year
  Sex: Female
  Weight: 65 kg

DRUGS (1)
  1. HUMIRA [Suspect]
     Active Substance: ADALIMUMAB
     Indication: RHEUMATOID ARTHRITIS
     Route: 058
     Dates: start: 20111125, end: 20160406

REACTIONS (6)
  - Pulmonary embolism [Unknown]
  - Asthenia [Unknown]
  - Fatigue [Unknown]
  - Palpitations [Unknown]
  - Intervertebral disc protrusion [Unknown]
  - Muscular weakness [Unknown]

NARRATIVE: CASE EVENT DATE: 201605
